FAERS Safety Report 14349781 (Version 1)
Quarter: 2018Q1

REPORT INFORMATION
  Report Type: Spontaneous
  Country: US (occurrence: US)
  Receive Date: 20180103
  Receipt Date: 20180103
  Transmission Date: 20180509
  Serious: Yes (Hospitalization)
  Sender: FDA-Public Use
  Company Number: None

PATIENT
  Age: 65 Year
  Sex: Male
  Weight: 77.4 kg

DRUGS (8)
  1. CLOBEX [Concomitant]
     Active Substance: CLOBETASOL PROPIONATE
  2. SEROQUEL [Concomitant]
     Active Substance: QUETIAPINE FUMARATE
  3. ATORVASTATIN [Concomitant]
     Active Substance: ATORVASTATIN
  4. ZINC SULFATE [Concomitant]
     Active Substance: ZINC SULFATE\ZINC SULFATE ANHYDROUS
  5. CAPECITABINE. [Suspect]
     Active Substance: CAPECITABINE
     Indication: PANCREATIC CARCINOMA
     Route: 048
     Dates: start: 20171117, end: 20171221
  6. LORAZEPAM. [Concomitant]
     Active Substance: LORAZEPAM
  7. MIRTAZAPINE. [Concomitant]
     Active Substance: MIRTAZAPINE
  8. FAMOTIDINE. [Concomitant]
     Active Substance: FAMOTIDINE

REACTIONS (10)
  - Dysgeusia [None]
  - Blood bilirubin increased [None]
  - Dyspepsia [None]
  - Diarrhoea [None]
  - Hepatic enzyme increased [None]
  - Pyrexia [None]
  - Gastrointestinal infection [None]
  - Nausea [None]
  - Stomatitis [None]
  - Hypophagia [None]

NARRATIVE: CASE EVENT DATE: 20180103
